FAERS Safety Report 13001444 (Version 1)
Quarter: 2016Q4

REPORT INFORMATION
  Report Type: Spontaneous
  Country: SI (occurrence: SI)
  Receive Date: 20161206
  Receipt Date: 20161206
  Transmission Date: 20170207
  Serious: Yes (Other)
  Sender: FDA-Public Use
  Company Number: SI-BAYER-2016-226339

PATIENT
  Age: 72 Year
  Sex: Male

DRUGS (7)
  1. CALCIUM CARBONATE. [Concomitant]
     Active Substance: CALCIUM CARBONATE
     Dosage: 1 G, QD
  2. XOFIGO [Suspect]
     Active Substance: RADIUM RA-223 DICHLORIDE
     Indication: HORMONE-REFRACTORY PROSTATE CANCER
     Dosage: UNK
     Dates: start: 201510
  3. XGEVA [Concomitant]
     Active Substance: DENOSUMAB
     Dosage: UNK UNK, Q1MON
     Dates: start: 201503
  4. NAKLOFEN [Concomitant]
     Active Substance: DICLOFENAC SODIUM
     Dosage: UNK UNK, PRN
  5. PLIVIT D3 [Concomitant]
     Active Substance: CHOLECALCIFEROL
     Dosage: 50 GTT, OW
  6. TRIPTORELIN EMBONATE [Concomitant]
     Active Substance: TRIPTORELIN PAMOATE
     Dosage: 22.5 MG, EACH 6 MONTHS
     Route: 058
  7. EUTHYROX [Concomitant]
     Active Substance: LEVOTHYROXINE SODIUM

REACTIONS (7)
  - Neoplasm prostate [None]
  - Spinal pain [None]
  - Abdominal pain upper [None]
  - Prostatic specific antigen increased [None]
  - Pollakiuria [None]
  - Urinary tract discomfort [None]
  - Lymphadenopathy [None]

NARRATIVE: CASE EVENT DATE: 2016
